FAERS Safety Report 12244380 (Version 1)
Quarter: 2016Q2

REPORT INFORMATION
  Report Type: Spontaneous
  Country: US (occurrence: US)
  Receive Date: 20160407
  Receipt Date: 20160407
  Transmission Date: 20160815
  Serious: Yes (Hospitalization)
  Sender: FDA-Public Use
  Company Number: US-BEH-2016060727

PATIENT
  Age: 64 Year
  Sex: Female
  Weight: 64 kg

DRUGS (14)
  1. HIZENTRA [Suspect]
     Active Substance: HUMAN IMMUNOGLOBULIN G
     Indication: IMMUNODEFICIENCY COMMON VARIABLE
     Dosage: 2 GM
     Route: 058
  2. MULTIVITAMINS [Concomitant]
     Active Substance: VITAMINS
  3. LEVODOPA [Concomitant]
     Active Substance: LEVODOPA
  4. ADDERALL [Concomitant]
     Active Substance: AMPHETAMINE ASPARTATE\AMPHETAMINE SULFATE\DEXTROAMPHETAMINE SACCHARATE\DEXTROAMPHETAMINE SULFATE
  5. PROZAC [Concomitant]
     Active Substance: FLUOXETINE HYDROCHLORIDE
  6. PLAVIX [Concomitant]
     Active Substance: CLOPIDOGREL BISULFATE
  7. WELLBUTRIN [Concomitant]
     Active Substance: BUPROPION HYDROCHLORIDE
  8. KLONOPIN [Concomitant]
     Active Substance: CLONAZEPAM
  9. CALCIM 600 + VITAMIN D [Concomitant]
  10. FISH OIL [Concomitant]
     Active Substance: FISH OIL
  11. VITAMIN C [Concomitant]
     Active Substance: ASCORBIC ACID
  12. RESTASIS [Concomitant]
     Active Substance: CYCLOSPORINE
  13. VITAMIN B12 [Concomitant]
     Active Substance: CYANOCOBALAMIN
  14. VITAMIN B COMPLEX [Concomitant]
     Active Substance: CYANOCOBALAMIN\DEXPANTHENOL\NIACINAMIDE\PYRIDOXINE HYDROCHLORIDE\RIBOFLAVIN 5^-PHOSPHATE SODIUM\THIAMINE HYDROCHLORIDE\VITAMIN B COMPLEX

REACTIONS (3)
  - Aortic aneurysm [Unknown]
  - Gastrointestinal haemorrhage [Unknown]
  - Gastritis [Unknown]

NARRATIVE: CASE EVENT DATE: 20160302
